FAERS Safety Report 19261439 (Version 1)
Quarter: 2021Q2

REPORT INFORMATION
  Report Type: Spontaneous
  Country: US (occurrence: US)
  Receive Date: 20210515
  Receipt Date: 20210515
  Transmission Date: 20210717
  Serious: Yes (Other)
  Sender: FDA-Public Use
  Company Number: US-AUROBINDO-AUR-APL-2021-019090

PATIENT
  Age: 16 Year
  Sex: Female

DRUGS (3)
  1. KETAMINE HYDROCHLORIDE. [Suspect]
     Active Substance: KETAMINE HYDROCHLORIDE
     Indication: BRONCHOSPASM
     Dosage: UNK
     Route: 065
  2. HELIOX [Suspect]
     Active Substance: OXYGEN
     Indication: BRONCHOSPASM
     Dosage: UNK
     Route: 065
  3. TERBUTALINE [Suspect]
     Active Substance: TERBUTALINE
     Indication: BRONCHOSPASM
     Dosage: UNK
     Route: 065

REACTIONS (1)
  - Treatment failure [Unknown]
